FAERS Safety Report 19610753 (Version 2)
Quarter: 2022Q3

REPORT INFORMATION
  Report Type: Spontaneous
  Country: US (occurrence: US)
  Receive Date: 20210726
  Receipt Date: 20220830
  Transmission Date: 20221026
  Serious: Yes (Other)
  Sender: FDA-Public Use
  Company Number: US-SA-2021SA245665

PATIENT
  Age: 71 Year
  Sex: Male

DRUGS (2)
  1. ZANTAC [Suspect]
     Active Substance: RANITIDINE HYDROCHLORIDE
     Indication: Dyspepsia
     Dosage: 150 MG (FREQUENCY: OTHER)
     Dates: start: 198501
  2. ZANTAC [Suspect]
     Active Substance: RANITIDINE HYDROCHLORIDE
     Dosage: 300 MG (FREQUENCY: OTHER)
     Dates: end: 201801

REACTIONS (1)
  - Thyroid cancer stage IV [Not Recovered/Not Resolved]

NARRATIVE: CASE EVENT DATE: 20180201
